FAERS Safety Report 4664485-8 (Version None)
Quarter: 2005Q2

REPORT INFORMATION
  Report Type: 
  Country: None (occurrence: None)
  Receive Date: 20050518
  Receipt Date: 20050510
  Transmission Date: 20051028
  Serious: Yes (Other)
  Sender: FDA-Public Use
  Company Number: PHEH2005US05372

PATIENT
  Sex: Male

DRUGS (1)
  1. RITALIN [Suspect]

REACTIONS (35)
  - AMNESIA [None]
  - ANGIOPATHY [None]
  - ANXIETY [None]
  - ARTHRALGIA [None]
  - BONE PAIN [None]
  - BRAIN DAMAGE [None]
  - CEREBRAL DISORDER [None]
  - CEREBROVASCULAR ACCIDENT [None]
  - CONFUSIONAL STATE [None]
  - DEPRESSION [None]
  - DISTURBANCE IN ATTENTION [None]
  - DIZZINESS [None]
  - EATING DISORDER [None]
  - FATIGUE [None]
  - FEELING ABNORMAL [None]
  - HYPERTENSION [None]
  - HYPOACUSIS [None]
  - IMMUNODEFICIENCY [None]
  - INFECTION IN AN IMMUNOCOMPROMISED HOST [None]
  - MENTAL IMPAIRMENT [None]
  - MIGRAINE [None]
  - MOOD SWINGS [None]
  - NASOPHARYNGITIS [None]
  - NAUSEA [None]
  - NERVOUSNESS [None]
  - OEDEMA [None]
  - PALPITATIONS [None]
  - PARANOIA [None]
  - PERFORMANCE STATUS DECREASED [None]
  - POOR PERIPHERAL CIRCULATION [None]
  - PYREXIA [None]
  - SOMNOLENCE [None]
  - SWEAT GLAND DISORDER [None]
  - VARICOSE VEIN [None]
  - VISION BLURRED [None]
